FAERS Safety Report 21174315 (Version 3)
Quarter: 2022Q3

REPORT INFORMATION
  Report Type: Other
  Country: US (occurrence: US)
  Receive Date: 20220804
  Receipt Date: 20220922
  Transmission Date: 20221027
  Serious: Yes (Hospitalization)
  Sender: FDA-Public Use
  Company Number: US-GBT-014115

PATIENT
  Age: 9 Year
  Sex: Male

DRUGS (1)
  1. OXBRYTA [Suspect]
     Active Substance: VOXELOTOR
     Indication: Sickle cell disease
     Dosage: WRITTEN ON 04/28/2022. UNSURE OF EXACT START DATE.
     Route: 048
     Dates: start: 20220530

REACTIONS (7)
  - Sickle cell anaemia with crisis [Recovering/Resolving]
  - Pyrexia [Recovering/Resolving]
  - Haemoglobin decreased [Recovering/Resolving]
  - Sickle cell anaemia with crisis [Unknown]
  - Epistaxis [Recovered/Resolved]
  - Sickle cell anaemia with crisis [Unknown]
  - Epistaxis [Recovered/Resolved]

NARRATIVE: CASE EVENT DATE: 20220601
